FAERS Safety Report 8229854-8 (Version None)
Quarter: 2012Q1

REPORT INFORMATION
  Report Type: 
  Country: None (occurrence: None)
  Receive Date: 20120323
  Receipt Date: 20120308
  Transmission Date: 20120608
  Serious: Yes (Other)
  Sender: FDA-Public Use
  Company Number: CO-AMGEN-COLCT2012003854

PATIENT
  Age: 58 Year
  Sex: Male

DRUGS (12)
  1. ARAVA [Concomitant]
     Indication: MUSCULOSKELETAL STIFFNESS
     Dosage: 20 MG, 1X/DAY
  2. FOLIC ACID [Concomitant]
     Dosage: 1 TABLET PER DAY
  3. SULFASALAZINE [Concomitant]
     Dosage: UNK
  4. CALCIUM D1 [Concomitant]
     Indication: OSTEOPENIA
     Dosage: UNK, PER DAY
  5. LEVOTHYROXINE SODIUM [Suspect]
     Indication: THYROID DISORDER
     Dosage: 50 MG, 1X/DAY
  6. IBUPROFEN [Concomitant]
     Dosage: UNK, AS NEEDED
  7. PREDNISOLONE [Concomitant]
     Indication: PAIN
     Dosage: 50 MG, 1X/DAY
  8. DOLEX [Concomitant]
     Indication: PAIN
     Dosage: 500 MG, AS NEEDED
  9. CALCIUM CARBONATE [Concomitant]
     Indication: OSTEOPENIA
     Dosage: UNK, PER DAY
  10. METHOTREXATE [Concomitant]
     Indication: RHEUMATOID ARTHRITIS
     Dosage: 2.5 MG, 4 TABLETS PER WEEK
  11. ETANERCEPT [Suspect]
     Indication: RHEUMATOID ARTHRITIS
     Dosage: 50 MG, WEEKLY
     Route: 058
     Dates: start: 20100713
  12. DOLEX                              /00020001/ [Concomitant]
     Indication: PAIN
     Dosage: 500 MG, AS NEEDED

REACTIONS (7)
  - JOINT SWELLING [None]
  - MYCOBACTERIUM TUBERCULOSIS COMPLEX TEST POSITIVE [None]
  - PAIN [None]
  - INFLAMMATION [None]
  - INFLUENZA [None]
  - PYREXIA [None]
  - THYROID DISORDER [None]
